FAERS Safety Report 15075331 (Version 1)
Quarter: 2018Q2

REPORT INFORMATION
  Report Type: Spontaneous
  Country: US (occurrence: US)
  Receive Date: 20180627
  Receipt Date: 20180627
  Transmission Date: 20180711
  Serious: Yes (Other)
  Sender: FDA-Public Use
  Company Number: US-SAOL THERAPEUTICS-2018SAO00363

PATIENT
  Age: 51 Year
  Sex: Female

DRUGS (2)
  1. BACLOFEN. [Suspect]
     Active Substance: BACLOFEN
     Indication: MULTIPLE SCLEROSIS
     Dosage: 98 ?G, \DAY
     Route: 037
  2. BUPIVACAINE. [Suspect]
     Active Substance: BUPIVACAINE
     Dosage: 0.9768 MG, \DAY
     Route: 037

REACTIONS (2)
  - Implant site extravasation [Not Recovered/Not Resolved]
  - Device leakage [Not Recovered/Not Resolved]

NARRATIVE: CASE EVENT DATE: 20180309
